FAERS Safety Report 8129468-4 (Version None)
Quarter: 2012Q1

REPORT INFORMATION
  Report Type: 
  Country: None (occurrence: None)
  Receive Date: 20120210
  Receipt Date: 20120201
  Transmission Date: 20120608
  Serious: Yes (Other)
  Sender: FDA-Public Use
  Company Number: US-MYLANLABS-2012S1002664

PATIENT
  Sex: Female

DRUGS (6)
  1. PLAVIX [Concomitant]
  2. ASACOL [Concomitant]
  3. RANITIDINE [Suspect]
  4. LIPITOR [Suspect]
  5. METOCLOPRAMIDE [Suspect]
  6. SINGULAIR [Concomitant]

REACTIONS (2)
  - MYOCARDIAL INFARCTION [None]
  - CROHN'S DISEASE [None]
